FAERS Safety Report 19421634 (Version 2)
Quarter: 2021Q3

REPORT INFORMATION
  Report Type: Spontaneous
  Country: JP (occurrence: JP)
  Receive Date: 20210615
  Receipt Date: 20210812
  Transmission Date: 20211014
  Serious: Yes (Death, Life-Threatening, Other)
  Sender: FDA-Public Use
  Company Number: JP-ROCHE-2850154

PATIENT
  Age: 8 Decade
  Sex: Male

DRUGS (13)
  1. TECENTRIQ [Suspect]
     Active Substance: ATEZOLIZUMAB
     Dosage: SINGLE
     Route: 041
     Dates: start: 20210414
  2. METGLUCO [Concomitant]
     Active Substance: METFORMIN HYDROCHLORIDE
     Dosage: UNK
     Route: 065
  3. TECENTRIQ [Suspect]
     Active Substance: ATEZOLIZUMAB
     Indication: HEPATOCELLULAR CARCINOMA
     Dosage: SINGLE
     Route: 041
     Dates: start: 20201014
  4. PREDONINE [Suspect]
     Active Substance: PREDNISOLONE
     Indication: PRODUCT USED FOR UNKNOWN INDICATION
     Route: 065
     Dates: start: 202105
  5. NESINA [Concomitant]
     Active Substance: ALOGLIPTIN BENZOATE
     Dosage: UNK
     Route: 065
  6. GLIMEPIRIDE. [Concomitant]
     Active Substance: GLIMEPIRIDE
     Dosage: UNK
     Route: 065
  7. CELLCEPT [Suspect]
     Active Substance: MYCOPHENOLATE MOFETIL\MYCOPHENOLATE MOFETIL HYDROCHLORIDE
     Indication: PRODUCT USED FOR UNKNOWN INDICATION
     Dosage: 2GRAM/DAY
     Route: 048
     Dates: start: 202105
  8. AVASTIN [Suspect]
     Active Substance: BEVACIZUMAB
     Indication: HEPATOCELLULAR CARCINOMA
     Dosage: SINGLE
     Route: 041
     Dates: start: 20201014
  9. CRESTOR [Concomitant]
     Active Substance: ROSUVASTATIN CALCIUM
     Dosage: UNK
     Route: 065
  10. TECENTRIQ [Suspect]
     Active Substance: ATEZOLIZUMAB
     Dosage: SINGLE
     Route: 041
     Dates: start: 20210324
  11. TECENTRIQ [Suspect]
     Active Substance: ATEZOLIZUMAB
     Dosage: SINGLE
     Route: 041
     Dates: start: 20210512
  12. DIOVAN [Concomitant]
     Active Substance: VALSARTAN
     Dosage: UNK
     Route: 065
  13. ALLOPURINOL. [Concomitant]
     Active Substance: ALLOPURINOL
     Dosage: UNK
     Route: 065

REACTIONS (11)
  - Drug-induced liver injury [Fatal]
  - Enterocolitis [Not Recovered/Not Resolved]
  - Duodenal ulcer [Unknown]
  - Shock haemorrhagic [Unknown]
  - Duodenal ulcer haemorrhage [Unknown]
  - Hepatic failure [Unknown]
  - White blood cell count increased [Unknown]
  - C-reactive protein increased [Unknown]
  - Hyperglycaemic hyperosmolar nonketotic syndrome [Unknown]
  - Cytomegalovirus infection [Unknown]
  - Off label use [Unknown]

NARRATIVE: CASE EVENT DATE: 2021
